FAERS Safety Report 16442444 (Version 2)
Quarter: 2019Q3

REPORT INFORMATION
  Report Type: Spontaneous
  Country: US (occurrence: US)
  Receive Date: 20190617
  Receipt Date: 20190709
  Transmission Date: 20191004
  Serious: Yes (Hospitalization)
  Sender: FDA-Public Use
  Company Number: US-B.I. PHARMACEUTICALS,INC./RIDGEFIELD-2019-BI-025956

PATIENT
  Age: 85 Year
  Sex: Male

DRUGS (8)
  1. TERAZOSIN [Concomitant]
     Active Substance: TERAZOSIN HYDROCHLORIDE
     Indication: PRODUCT USED FOR UNKNOWN INDICATION
     Dosage: DAILY;  FORM STRENGTH: 5 MG; FORMULATION: TABLET
     Route: 048
  2. SPIRONOLACTONE. [Concomitant]
     Active Substance: SPIRONOLACTONE
     Indication: PRODUCT USED FOR UNKNOWN INDICATION
     Dosage: DAILY;  FORM STRENGTH: 25 MG; FORMULATION: TABLET
     Route: 048
  3. ATORVASTATIN [Concomitant]
     Active Substance: ATORVASTATIN
     Indication: PRODUCT USED FOR UNKNOWN INDICATION
     Dosage: DAILY;  FORM STRENGTH: 5 MG; FORMULATION: TABLET
     Route: 048
  4. AMLODIPINE [Concomitant]
     Active Substance: AMLODIPINE BESYLATE
     Indication: PRODUCT USED FOR UNKNOWN INDICATION
     Dosage: DAILY;  FORM STRENGTH: 10 MG; FORMULATION: TABLET
     Route: 048
  5. AMIODIRONE [Concomitant]
     Indication: PRODUCT USED FOR UNKNOWN INDICATION
     Dosage: DAILY;  FORM STRENGTH: 200 MG; FORMULATION: TABLET
     Route: 048
  6. PRADAXA [Suspect]
     Active Substance: DABIGATRAN ETEXILATE MESYLATE
     Indication: ATRIAL FIBRILLATION
     Route: 048
     Dates: start: 2018, end: 20190607
  7. HYDRALAZINE [Concomitant]
     Active Substance: HYDRALAZINE HYDROCHLORIDE
     Indication: PRODUCT USED FOR UNKNOWN INDICATION
     Dosage: 3 TIMES DAILY;  FORM STRENGTH: 50 MG; FORMULATION: TABLET
     Route: 048
  8. FUROSEMIDE. [Concomitant]
     Active Substance: FUROSEMIDE
     Indication: PRODUCT USED FOR UNKNOWN INDICATION
     Dosage: DAILY;  FORM STRENGTH: 40 MG; FORMULATION: TABLET
     Route: 048

REACTIONS (3)
  - Haemoglobin abnormal [Recovered/Resolved]
  - Haematochezia [Recovered/Resolved]
  - Large intestinal haemorrhage [Recovered/Resolved]

NARRATIVE: CASE EVENT DATE: 201905
